FAERS Safety Report 10004056 (Version 2)
Quarter: 2014Q1

REPORT INFORMATION
  Report Type: Spontaneous
  Country: CN (occurrence: CN)
  Receive Date: 20140312
  Receipt Date: 20140312
  Transmission Date: 20141002
  Serious: Yes (Other)
  Sender: FDA-Public Use
  Company Number: CN-BAYER-2013-038545

PATIENT
  Age: 30 Year
  Sex: Female

DRUGS (1)
  1. CANESTEN (KAINITING) [Suspect]
     Indication: VULVOVAGINAL MYCOTIC INFECTION
     Dosage: UNK
     Route: 067
     Dates: start: 201303, end: 201303

REACTIONS (3)
  - Exposure during pregnancy [None]
  - Drug ineffective [None]
  - Caesarean section [None]
